FAERS Safety Report 10592429 (Version 2)
Quarter: 2014Q4

REPORT INFORMATION
  Report Type: Spontaneous
  Country: US (occurrence: None)
  Receive Date: 20141117
  Receipt Date: 20141216
  Transmission Date: 20150529
  Serious: Yes (Hospitalization)
  Sender: FDA-Public Use
  Company Number: 2014-US-014664

PATIENT
  Sex: Female

DRUGS (1)
  1. XYREM [Suspect]
     Active Substance: SODIUM OXYBATE
     Indication: SLEEP DISORDER
     Route: 048
     Dates: start: 200712

REACTIONS (5)
  - Off label use [None]
  - Lumbar spinal stenosis [None]
  - Intervertebral disc degeneration [None]
  - Intervertebral disc protrusion [None]
  - Back pain [None]
